FAERS Safety Report 5157198-X (Version None)
Quarter: 2006Q4

REPORT INFORMATION
  Report Type: 
  Country: None (occurrence: None)
  Receive Date: 20061113
  Receipt Date: 20061026
  Transmission Date: 20070319
  Serious: Yes (Other)
  Sender: FDA-Public Use
  Company Number: THYM-11156

PATIENT

DRUGS (5)
  1. THYMOGLOBULIN [Suspect]
     Indication: PREOPERATIVE CARE
     Dosage: 1.5 MG/KG QD IV
     Route: 042
  2. THYMOGLOBULIN [Suspect]
     Indication: RENAL TRANSPLANT
     Dosage: 1.5 MG/KG QD IV
     Route: 042
  3. TACROLIMUS [Concomitant]
  4. MYCOPHENOLATE MOFETIL [Concomitant]
  5. SOLU-MEDROL [Concomitant]

REACTIONS (7)
  - CARDIOVASCULAR DISORDER [None]
  - COMPLICATIONS OF TRANSPLANTED KIDNEY [None]
  - HAEMODIALYSIS [None]
  - IATROGENIC INJURY [None]
  - PROCEDURAL COMPLICATION [None]
  - RENAL INJURY [None]
  - RENAL TUBULAR DISORDER [None]
